FAERS Safety Report 6137965-6 (Version None)
Quarter: 2009Q1

REPORT INFORMATION
  Report Type: 
  Country: None (occurrence: None)
  Receive Date: 20090331
  Receipt Date: 20090318
  Transmission Date: 20090719
  Serious: Yes (Hospitalization, Other)
  Sender: FDA-Public Use
  Company Number: JP-PFIZER INC-2009161841

PATIENT

DRUGS (5)
  1. VFEND [Suspect]
     Indication: ASPERGILLOSIS
     Dosage: 300 MG, 2X/DAY
     Dates: start: 20090109, end: 20090109
  2. VFEND [Suspect]
     Dosage: 150 MG, 2X/DAY
     Route: 042
     Dates: start: 20090110, end: 20090114
  3. VFEND [Suspect]
     Dosage: 100 MG, 2X/DAY
     Dates: start: 20090115, end: 20090118
  4. MICAFUNGIN SODIUM [Concomitant]
     Dates: start: 20090103, end: 20090108
  5. PREDONINE [Concomitant]
     Dates: start: 20081226, end: 20090113

REACTIONS (1)
  - PSEUDOMEMBRANOUS COLITIS [None]
